FAERS Safety Report 4853982-8 (Version None)
Quarter: 2005Q4

REPORT INFORMATION
  Report Type: 
  Country: None (occurrence: None)
  Receive Date: 20051125
  Receipt Date: 20050330
  Transmission Date: 20060501
  Serious: Yes (Hospitalization)
  Sender: FDA-Public Use
  Company Number: US-JNJFOC-20050400409

PATIENT
  Age: 36 Year
  Sex: Female

DRUGS (1)
  1. LEVAQUIN [Suspect]
     Indication: SINUS DISORDER
     Dosage: 750 MG, 1 IN 1 DAY, ORAL
     Route: 048

REACTIONS (1)
  - CLOSTRIDIAL INFECTION [None]
